FAERS Safety Report 8773762 (Version 1)
Quarter: 2012Q4

REPORT INFORMATION
  Report Type: 
  Country: US (occurrence: US)
  Receive Date: 20120907
  Receipt Date: 20120907
  Transmission Date: 20130627
  Serious: No
  Sender: FDA-Public Use
  Company Number: US-PFIZER INC-2012217980

PATIENT
  Age: 86 Year
  Sex: Female
  Weight: 72.56 kg

DRUGS (2)
  1. ADVIL [Suspect]
     Indication: OSTEOARTHRITIS
     Dosage: 200 mg, daily
  2. BC [Concomitant]
     Indication: PAIN
     Dosage: UNK

REACTIONS (2)
  - Incorrect drug administration duration [Unknown]
  - Tinnitus [Unknown]
